FAERS Safety Report 11880058 (Version 1)
Quarter: 2015Q4

REPORT INFORMATION
  Report Type: Spontaneous
  Country: ES (occurrence: ES)
  Receive Date: 20151230
  Receipt Date: 20151230
  Transmission Date: 20160305
  Serious: Yes (Other)
  Sender: FDA-Public Use
  Company Number: ES-MYLANLABS-2015M1047521

PATIENT

DRUGS (12)
  1. DEXAMETHASONE. [Suspect]
     Active Substance: DEXAMETHASONE
     Indication: PLASMA CELL MYELOMA
     Dosage: FIRST-LINE THERAPY, 6 CYCLES; FOLLOWED BY
     Route: 042
  2. DEXAMETHASONE. [Suspect]
     Active Substance: DEXAMETHASONE
     Dosage: FOLLOWED BY INDUCTION THERAPY AND THEN MAINTENANCE THERAPY WITH 40 MG/WEEK; REDUCED TO
     Route: 042
  3. PANOBINOSTAT [Suspect]
     Active Substance: PANOBINOSTAT
     Dosage: REDUCED TO 10 MG
     Route: 048
  4. BORTEZOMIB [Suspect]
     Active Substance: BORTEZOMIB
     Dosage: FOLLOWED BY INDUCTION THERAPY WITH 8 CYCLES OF 21 DAYS OF 1.3 MG/M2; REDUCED TO
     Route: 042
  5. PANOBINOSTAT [Suspect]
     Active Substance: PANOBINOSTAT
     Dosage: FOLLOWED BY MAINTENANCE THERAPY WITH 15 MG THRICE WEEKLY; REDUCED TO
     Route: 048
  6. THALIDOMIDE [Concomitant]
     Active Substance: THALIDOMIDE
     Indication: PLASMA CELL MYELOMA
     Dosage: UNK
     Route: 065
  7. BORTEZOMIB [Suspect]
     Active Substance: BORTEZOMIB
     Dosage: REDUCED TO 1 MG/M2
     Route: 042
  8. BORTEZOMIB [Suspect]
     Active Substance: BORTEZOMIB
     Indication: PLASMA CELL MYELOMA
     Dosage: FIRST-LINE THERAPY, 6 CYCLES; FOLLOWED BY
     Route: 042
  9. PANOBINOSTAT [Suspect]
     Active Substance: PANOBINOSTAT
     Indication: PLASMA CELL MYELOMA
     Dosage: INDUCTION THERAPY WITH 8 CYCLES OF 21 DAYS OF 25 MG; FOLLOWED BY
     Route: 048
  10. PANOBINOSTAT [Suspect]
     Active Substance: PANOBINOSTAT
     Dosage: FOLLOWED BY 20 MG; REDUCED TO
     Route: 048
  11. DEXAMETHASONE. [Suspect]
     Active Substance: DEXAMETHASONE
     Dosage: REDUCED TO 20 MG WEEKLY DURING CYCLE 49
     Route: 042
  12. PANOBINOSTAT [Suspect]
     Active Substance: PANOBINOSTAT
     Dosage: REDUCED TO 15 MG; FOLLOWED BY
     Route: 048

REACTIONS (9)
  - Diarrhoea [Recovering/Resolving]
  - Nausea [Recovering/Resolving]
  - Neuropathy peripheral [Recovering/Resolving]
  - Asthenia [Recovering/Resolving]
  - Decreased appetite [Recovering/Resolving]
  - Neutropenia [Recovering/Resolving]
  - Thrombocytopenia [Recovering/Resolving]
  - Dysgeusia [Recovering/Resolving]
  - Insomnia [Unknown]
